FAERS Safety Report 17827990 (Version 3)
Quarter: 2021Q3

REPORT INFORMATION
  Report Type: Report from Study
  Country: NL (occurrence: NL)
  Receive Date: 20200527
  Receipt Date: 20210802
  Transmission Date: 20211014
  Serious: Yes (Life-Threatening, Other)
  Sender: FDA-Public Use
  Company Number: NVSC2020NL143329

PATIENT
  Age: 70 Year
  Sex: Female
  Weight: 76 kg

DRUGS (5)
  1. ALPELISIB [Suspect]
     Active Substance: ALPELISIB
     Dosage: 250 MG
     Route: 048
     Dates: start: 20191008, end: 20200421
  2. ALPELISIB [Suspect]
     Active Substance: ALPELISIB
     Dosage: 150 MG
     Route: 048
     Dates: start: 20200507
  3. CHOLECALCIFEROL [Concomitant]
     Active Substance: CHOLECALCIFEROL
     Dosage: 400 E
     Route: 065
     Dates: start: 20190519, end: 20200421
  4. ALPELISIB [Suspect]
     Active Substance: ALPELISIB
     Indication: ENDOMETRIAL CANCER METASTATIC
     Dosage: 200 MG
     Route: 065
  5. CHOLECALCIFEROL [Concomitant]
     Active Substance: CHOLECALCIFEROL
     Indication: OSTEOPOROSIS PROPHYLAXIS
     Dosage: 400 E
     Route: 065
     Dates: start: 20190519

REACTIONS (7)
  - Hyperglycaemia [Recovering/Resolving]
  - Neutropenia [Recovered/Resolved]
  - Thirst [Unknown]
  - Fatigue [Unknown]
  - Oedema [Unknown]
  - Urine ketone body present [Unknown]
  - Polyuria [Unknown]

NARRATIVE: CASE EVENT DATE: 20191004
